FAERS Safety Report 5041194-7 (Version None)
Quarter: 2006Q3

REPORT INFORMATION
  Report Type: 
  Country: None (occurrence: None)
  Receive Date: 20060703
  Receipt Date: 20060628
  Transmission Date: 20061208
  Serious: Yes (Other)
  Sender: FDA-Public Use
  Company Number: US-GLAXOSMITHKLINE-A0610839A

PATIENT
  Age: 57 Year
  Sex: Male

DRUGS (3)
  1. WELLBUTRIN XL [Suspect]
     Indication: DEPRESSION
     Dosage: 150MG PER DAY
     Route: 048
     Dates: start: 20060618, end: 20060625
  2. PRAVACHOL [Concomitant]
  3. ASPIRIN [Concomitant]

REACTIONS (4)
  - ASTHENIA [None]
  - COORDINATION ABNORMAL [None]
  - HYPOTHYROIDISM [None]
  - TREMOR [None]
